FAERS Safety Report 4618148-5 (Version None)
Quarter: 2005Q1

REPORT INFORMATION
  Report Type: 
  Country: None (occurrence: None)
  Receive Date: 20050323
  Receipt Date: 20050309
  Transmission Date: 20050727
  Serious: Yes (Other)
  Sender: FDA-Public Use
  Company Number: TUK2005A00022

PATIENT
  Age: 46 Year
  Sex: Female

DRUGS (2)
  1. ACTOS [Suspect]
     Dosage: 30 MG
     Dates: start: 20021101, end: 20030601
  2. ACTOS [Suspect]
     Dosage: 30 MG
     Dates: start: 20020701

REACTIONS (7)
  - ARTHRALGIA [None]
  - BLOOD DISORDER [None]
  - BLOOD GLUCOSE INCREASED [None]
  - PLATELET COUNT INCREASED [None]
  - RED BLOOD CELL SEDIMENTATION RATE INCREASED [None]
  - WEIGHT INCREASED [None]
  - WHITE BLOOD CELL COUNT INCREASED [None]
